FAERS Safety Report 10263743 (Version 5)
Quarter: 2015Q1

REPORT INFORMATION
  Report Type: Spontaneous
  Country: NL (occurrence: NL)
  Receive Date: 20140627
  Receipt Date: 20150223
  Transmission Date: 20150720
  Serious: Yes (Hospitalization)
  Sender: FDA-Public Use
  Company Number: NL-AMGEN INC.-NLDSP2014047502

PATIENT
  Age: 49 Year
  Sex: Female

DRUGS (33)
  1. THYRAX                             /00068002/ [Concomitant]
     Indication: HYPOTHYROIDISM
     Dosage: UNK UNK, EVERYDAY
     Route: 048
     Dates: start: 199211
  2. NITROFURANTOINE [Concomitant]
     Indication: MUCOSAL INFLAMMATION
     Dosage: 50 MG, 4 IN 1 D
     Route: 048
  3. PLAQUENIL [Concomitant]
     Active Substance: HYDROXYCHLOROQUINE SULFATE
     Indication: FIBROMYALGIA
     Dosage: 200 MG, 1 IN 1 D
     Route: 048
     Dates: start: 20080204
  4. ADRENALINE                         /00003901/ [Suspect]
     Active Substance: EPINEPHRINE
     Indication: PRODUCT USED FOR UNKNOWN INDICATION
     Dosage: 0.5 MG
     Route: 042
     Dates: start: 20140614, end: 20140614
  5. VINCRISTINE [Concomitant]
     Active Substance: VINCRISTINE
     Indication: DIFFUSE LARGE B-CELL LYMPHOMA
     Dosage: UNK
     Route: 065
  6. ONDANSETRON [Concomitant]
     Active Substance: ONDANSETRON
     Indication: PROPHYLAXIS
     Dosage: 8 MG, INTERMITTENT
     Route: 048
     Dates: start: 20140523
  7. TAVEGIL                            /00137202/ [Concomitant]
     Indication: PROPHYLAXIS
     Dosage: 1 MG, INTERMITTENT
     Route: 048
     Dates: start: 20140610
  8. ITRACONAZOL [Concomitant]
     Active Substance: ITRACONAZOLE
     Indication: MUCOSAL INFLAMMATION
     Dosage: 100 MG, EVERYDAY
     Route: 048
     Dates: start: 20140904
  9. MORPHINE SULFATE. [Concomitant]
     Active Substance: MORPHINE SULFATE
     Indication: BACK PAIN
     Dosage: 40 MG (20 MG, 2 IN 1 D)
     Route: 048
     Dates: start: 20140821, end: 20140828
  10. MORPHINE SULFATE. [Concomitant]
     Active Substance: MORPHINE SULFATE
     Dosage: EVERYDAY
     Route: 048
     Dates: start: 20140828
  11. PARACETAMOL [Concomitant]
     Active Substance: ACETAMINOPHEN
     Dosage: (1000 MG, 1 IN 1 AS REQUIRED)
     Route: 048
     Dates: start: 20140820
  12. TRAMADOL [Concomitant]
     Active Substance: TRAMADOL
     Indication: BACK PAIN
     Dosage: 100 MG (50 MG, 2 IN 1 D)
     Route: 048
     Dates: start: 20140820, end: 20140821
  13. AMITRIPTYLINE [Concomitant]
     Active Substance: AMITRIPTYLINE
     Indication: FIBROMYALGIA
     Dosage: EVERYDAY
     Route: 048
     Dates: start: 20131206, end: 20140520
  14. AUGMENTIN [Concomitant]
     Active Substance: AMOXICILLIN\CLAVULANATE POTASSIUM
     Indication: URINARY TRACT INFECTION
     Dosage: 500/125 MG, (2 IN 1 D)
     Route: 048
     Dates: start: 20140801
  15. PEGFILGRASTIM [Suspect]
     Active Substance: PEGFILGRASTIM
     Indication: PROPHYLAXIS
     Dosage: 6 MG,1 IN 2 WK
     Route: 058
     Dates: start: 20140613, end: 20140613
  16. ONDANSETRON [Concomitant]
     Active Substance: ONDANSETRON
     Dosage: 8 MG, INTERMITTENT
     Route: 042
     Dates: start: 20140525
  17. NYSTATINE [Concomitant]
     Indication: MUCOSAL INFLAMMATION
     Dosage: 1500000 IU (500000 IU, 3 IN 1 D)
     Route: 048
     Dates: start: 20140828, end: 20140904
  18. PARACETAMOL [Concomitant]
     Active Substance: ACETAMINOPHEN
     Indication: BACK PAIN
     Dosage: 4000 MG, (1000 MG, 4 IN 1 D)
     Route: 048
     Dates: start: 20140820, end: 20140828
  19. PLAQUENIL [Concomitant]
     Active Substance: HYDROXYCHLOROQUINE SULFATE
     Dosage: 200 MG, 1 IN 1 D
     Route: 048
     Dates: start: 20140603
  20. RITUXIMAB [Concomitant]
     Active Substance: RITUXIMAB
     Indication: DIFFUSE LARGE B-CELL LYMPHOMA
     Dosage: UNK
     Route: 042
  21. RITUXIMAB [Concomitant]
     Active Substance: RITUXIMAB
     Dosage: 1400 MG, 1 IN 2 WK
     Route: 058
     Dates: start: 20140522
  22. PREDNISONE. [Concomitant]
     Active Substance: PREDNISONE
     Indication: ANGIOEDEMA
  23. CYCLOPHOSPHAMIDE. [Concomitant]
     Active Substance: CYCLOPHOSPHAMIDE
     Indication: DIFFUSE LARGE B-CELL LYMPHOMA
     Dosage: UNK
     Route: 065
  24. CELEBREX [Concomitant]
     Active Substance: CELECOXIB
     Dosage: 200 MG, 2 IN 1 D
     Route: 048
     Dates: start: 20140603
  25. CELEBREX [Concomitant]
     Active Substance: CELECOXIB
     Dosage: 200 MG, 2 IN 1 D
     Route: 048
     Dates: start: 20080204
  26. PREDNISOLONE. [Suspect]
     Active Substance: PREDNISOLONE
     Indication: PRODUCT USED FOR UNKNOWN INDICATION
     Dosage: UNK
     Route: 065
  27. LACTULOSE. [Concomitant]
     Active Substance: LACTULOSE
     Indication: CONSTIPATION
     Dosage: 15 ML, AS NEEDED
     Route: 048
     Dates: start: 20140821
  28. DERMOVATE [Suspect]
     Active Substance: CLOBETASOL
     Indication: ACUTE FEBRILE NEUTROPHILIC DERMATOSIS
     Dosage: 0.5 MG/G, 2 IN 1 D
     Route: 062
     Dates: start: 20140610
  29. DOXORUBICIN [Concomitant]
     Active Substance: DOXORUBICIN
     Indication: DIFFUSE LARGE B-CELL LYMPHOMA
     Dosage: UNK
     Route: 065
  30. PREDNISONE. [Concomitant]
     Active Substance: PREDNISONE
     Indication: DIFFUSE LARGE B-CELL LYMPHOMA
     Dosage: 25 MG, UNK
     Route: 042
     Dates: start: 20140614
  31. CELEBREX [Concomitant]
     Active Substance: CELECOXIB
     Indication: FIBROMYALGIA
     Dosage: 400 MG, (200 MG, 2 IN 1 D)
     Route: 048
     Dates: start: 20131206, end: 20140520
  32. URSOCHOL [Concomitant]
     Dosage: EVERYDAY (900 MG, 1  IN 1 D)
     Route: 048
     Dates: start: 20131101
  33. GLYCEROL [Concomitant]
     Active Substance: GLYCERIN
     Indication: MUCOSAL INFLAMMATION
     Dosage: 3 IN 1 D
     Route: 048
     Dates: start: 20140823

REACTIONS (1)
  - Angioedema [Recovered/Resolved]

NARRATIVE: CASE EVENT DATE: 20140614
